FAERS Safety Report 9761197 (Version 2)
Quarter: 2013Q4

REPORT INFORMATION
  Report Type: Spontaneous
  Country: US (occurrence: US)
  Receive Date: 20131216
  Receipt Date: 20131220
  Transmission Date: 20140711
  Serious: Yes (Other)
  Sender: FDA-Public Use
  Company Number: US-PFIZER INC-2013359158

PATIENT
  Age: 50 Year
  Sex: Female
  Weight: 62.59 kg

DRUGS (1)
  1. AMIODARONE HCL [Suspect]
     Indication: VENTRICULAR TACHYCARDIA
     Dosage: UNK
     Dates: start: 1998

REACTIONS (3)
  - Cardiac disorder [Unknown]
  - Heart rate increased [Unknown]
  - Reaction to drug excipients [Unknown]
